FAERS Safety Report 20541550 (Version 1)
Quarter: 2022Q1

REPORT INFORMATION
  Report Type: Spontaneous
  Country: RU (occurrence: RU)
  Receive Date: 20220302
  Receipt Date: 20220302
  Transmission Date: 20220424
  Serious: Yes (Other)
  Sender: FDA-Public Use
  Company Number: RU-JNJFOC-20211158139

PATIENT
  Age: 42 Year
  Sex: Female
  Weight: 100 kg

DRUGS (7)
  1. INTELENCE [Suspect]
     Active Substance: ETRAVIRINE
     Indication: HIV infection
     Route: 048
     Dates: start: 20200306, end: 20200703
  2. TENOFOVIR\TENOFOVIR DISOPROXIL FUMARATE [Concomitant]
     Active Substance: TENOFOVIR\TENOFOVIR DISOPROXIL FUMARATE
     Route: 048
     Dates: start: 20180717, end: 20200703
  3. LAMIVUDINE [Concomitant]
     Active Substance: LAMIVUDINE
     Route: 048
     Dates: start: 20180717, end: 20200703
  4. RETVISET [Concomitant]
     Route: 048
     Dates: start: 20180717, end: 20200601
  5. ATAZANAVIR [Concomitant]
     Active Substance: ATAZANAVIR
     Route: 048
     Dates: start: 20180717, end: 20200601
  6. REGULON [DESOGESTREL;ETHINYLESTRADIOL] [Concomitant]
     Indication: Uterine leiomyoma
     Route: 048
     Dates: start: 20200703
  7. FERROUS SULFATE [Concomitant]
     Active Substance: FERROUS SULFATE
     Indication: Anaemia
     Route: 048
     Dates: start: 20190821, end: 20200601

REACTIONS (1)
  - Blood pressure increased [Recovering/Resolving]

NARRATIVE: CASE EVENT DATE: 20200601
